FAERS Safety Report 21734713 (Version 1)
Quarter: 2022Q4

REPORT INFORMATION
  Report Type: Spontaneous
  Country: PL (occurrence: PL)
  Receive Date: 20221215
  Receipt Date: 20221215
  Transmission Date: 20230112
  Serious: Yes (Hospitalization)
  Sender: FDA-Public Use
  Company Number: None

PATIENT
  Age: 62 Year
  Sex: Male
  Weight: 86 kg

DRUGS (3)
  1. DACARBAZINE [Suspect]
     Active Substance: DACARBAZINE
     Indication: Malignant melanoma
     Dosage: UNIT DOSE :2000 MG
     Dates: start: 20180524, end: 20180524
  2. SODIUM CHLORIDE [Concomitant]
     Active Substance: SODIUM CHLORIDE
     Indication: Malignant melanoma
     Dosage: 0.9 % W/V,UNIT DOSE:100ML
     Dates: start: 20180524, end: 20180524
  3. Atossa [Concomitant]
     Indication: Malignant melanoma
     Dosage: UNIT DOSE :8MG
     Dates: start: 20180524, end: 20180524

REACTIONS (1)
  - Loss of consciousness [Unknown]

NARRATIVE: CASE EVENT DATE: 20180524
